FAERS Safety Report 18964995 (Version 1)
Quarter: 2021Q1

REPORT INFORMATION
  Report Type: Spontaneous
  Country: US (occurrence: US)
  Receive Date: 20210303
  Receipt Date: 20210303
  Transmission Date: 20210420
  Serious: No
  Sender: FDA-Public Use
  Company Number: US-AMNEAL PHARMACEUTICALS-2020-AMRX-01821

PATIENT
  Sex: Male

DRUGS (3)
  1. RYTARY [Suspect]
     Active Substance: CARBIDOPA\LEVODOPA
     Indication: PARKINSON^S DISEASE
     Dosage: 61.25/ 245MG, 2 CAPSULES, 5X/DAY AT 6:30AM, 10:30AM, 2:30PM, 6:30PM AND AT BEDTIME
     Route: 048
  2. RYTARY [Suspect]
     Active Substance: CARBIDOPA\LEVODOPA
     Dosage: 61.25/ 245MG, 3 CAPSULES, 5X/DAY AT 6:30AM, 10:30AM, 2:30PM, 6:30PM AND AT BEDTIME
     Route: 048
     Dates: start: 20200512, end: 202006
  3. RYTARY [Suspect]
     Active Substance: CARBIDOPA\LEVODOPA
     Dosage: 48.75/195 MG, 2 CAPSULES, 6X/DAY AND IN THE MIDDLE OF THE NIGHT IF AWAKE
     Route: 048
     Dates: start: 20200625

REACTIONS (1)
  - Therapeutic product effect incomplete [Unknown]

NARRATIVE: CASE EVENT DATE: 2020
